FAERS Safety Report 6247643-0 (Version None)
Quarter: 2009Q2

REPORT INFORMATION
  Report Type: 
  Country: None (occurrence: None)
  Receive Date: 20090626
  Receipt Date: 20090615
  Transmission Date: 20091009
  Serious: Yes (Hospitalization)
  Sender: FDA-Public Use
  Company Number: JP-ELI_LILLY_AND_COMPANY-JP200906001896

PATIENT
  Sex: Female

DRUGS (3)
  1. EVISTA [Suspect]
     Route: 048
  2. BLOPRESS [Concomitant]
  3. PARIET [Concomitant]

REACTIONS (2)
  - ANTI-NEUTROPHIL CYTOPLASMIC ANTIBODY POSITIVE VASCULITIS [None]
  - EOSINOPHIL COUNT INCREASED [None]
